FAERS Safety Report 4817632-9 (Version None)
Quarter: 2005Q4

REPORT INFORMATION
  Report Type: 
  Country: None (occurrence: None)
  Receive Date: 20051019
  Receipt Date: 20050412
  Transmission Date: 20060501
  Serious: Yes (Other)
  Sender: FDA-Public Use
  Company Number: PHEH2005US04221

PATIENT
  Age: 57 Year
  Sex: Female

DRUGS (2)
  1. MIACALCIN [Suspect]
     Indication: OSTEOPOROSIS
     Dosage: 200 IU, QD, INTRANASAL
     Dates: start: 19980101
  2. ESTRATEST [Concomitant]

REACTIONS (8)
  - DRY MOUTH [None]
  - HYPERTENSION [None]
  - MYOCARDIAL INFARCTION [None]
  - ORAL DISCOMFORT [None]
  - ORAL PAIN [None]
  - TOOTH EXTRACTION [None]
  - TOOTH FRACTURE [None]
  - URINARY TRACT INFECTION [None]
